FAERS Safety Report 16091255 (Version 1)
Quarter: 2019Q1

REPORT INFORMATION
  Report Type: Spontaneous
  Country: ES (occurrence: ES)
  Receive Date: 20190319
  Receipt Date: 20190319
  Transmission Date: 20190418
  Serious: Yes (Other)
  Sender: FDA-Public Use
  Company Number: ES-BAYER-2019-022053

PATIENT
  Age: 41 Year
  Sex: Female

DRUGS (1)
  1. STIVARGA [Suspect]
     Active Substance: REGORAFENIB
     Dosage: UNK
     Dates: start: 201301, end: 201405

REACTIONS (10)
  - Mediastinal mass [None]
  - Weight decreased [None]
  - Metastases to lung [None]
  - Pulmonary mass [None]
  - Traumatic lung injury [None]
  - Disease progression [None]
  - Metastases to adrenals [None]
  - Lymphadenopathy [None]
  - Fatigue [None]
  - Skin toxicity [None]

NARRATIVE: CASE EVENT DATE: 2014
